FAERS Safety Report 9133223 (Version 1)
Quarter: 2013Q1

REPORT INFORMATION
  Report Type: Spontaneous
  Country: US (occurrence: US)
  Receive Date: 20130301
  Receipt Date: 20130301
  Transmission Date: 20140127
  Serious: No
  Sender: FDA-Public Use
  Company Number: US-BAYER-2013-019773

PATIENT
  Age: 26 Year
  Sex: Female

DRUGS (1)
  1. DESONATE GEL [Suspect]
     Indication: BURNING SENSATION
     Dosage: UNK UNK, ONCE
     Dates: start: 20130204, end: 20130204

REACTIONS (2)
  - Drug ineffective [None]
  - Application site pain [Not Recovered/Not Resolved]
